FAERS Safety Report 4781342-7 (Version None)
Quarter: 2005Q3

REPORT INFORMATION
  Report Type: 
  Country: None (occurrence: None)
  Receive Date: 20050928
  Receipt Date: 20050922
  Transmission Date: 20060218
  Serious: Yes (Other)
  Sender: FDA-Public Use
  Company Number: 2005PK01747

PATIENT
  Age: 22547 Day
  Sex: Female
  Weight: 76.7 kg

DRUGS (5)
  1. ARIMIDEX [Suspect]
     Indication: BREAST CANCER
     Route: 048
     Dates: start: 20050630, end: 20050812
  2. MAGNESIUM [Suspect]
  3. LEXOTANIL [Concomitant]
     Indication: RESTLESSNESS
  4. ENDOXAN [Concomitant]
     Indication: CHEMOTHERAPY
     Dates: start: 20050201, end: 20050501
  5. FARMORUBICIN [Concomitant]
     Indication: CHEMOTHERAPY
     Dates: start: 20050201, end: 20050501

REACTIONS (4)
  - CARPAL TUNNEL SYNDROME [None]
  - FIBROMYALGIA [None]
  - MUSCULOSKELETAL STIFFNESS [None]
  - PAIN [None]
